FAERS Safety Report 5248710-0 (Version None)
Quarter: 2007Q1

REPORT INFORMATION
  Report Type: 
  Country: None (occurrence: None)
  Receive Date: 20070222
  Receipt Date: 20070214
  Transmission Date: 20070707
  Serious: Yes (Other)
  Sender: FDA-Public Use
  Company Number: FABR-11582

PATIENT
  Age: 50 Year
  Sex: Male
  Weight: 83.0083 kg

DRUGS (8)
  1. FABRAZYME [Suspect]
     Indication: FABRY'S DISEASE
     Dosage: 85 MG Q2WKS IV
     Route: 042
     Dates: start: 20050421
  2. IBUPROFEN [Concomitant]
  3. TOPROL-XL [Concomitant]
  4. COUMADIN [Concomitant]
  5. ASPIRIN [Concomitant]
  6. FOLIC ACID [Concomitant]
  7. VITAMIN B-12 [Concomitant]
  8. BENADRYL [Concomitant]

REACTIONS (2)
  - CARDIAC FAILURE CONGESTIVE [None]
  - CARDIOMYOPATHY [None]
